FAERS Safety Report 9322056 (Version 1)
Quarter: 2013Q2

REPORT INFORMATION
  Report Type: Spontaneous
  Country: ES (occurrence: None)
  Receive Date: 20130529
  Receipt Date: 20130529
  Transmission Date: 20140414
  Serious: Yes (Hospitalization)
  Sender: FDA-Public Use
  Company Number: IMP_06709_2013

PATIENT
  Age: 64 Year
  Sex: Male

DRUGS (1)
  1. OMEPRAZOLE (OMEPRAZOLE) [Suspect]
     Indication: GASTROOESOPHAGEAL REFLUX DISEASE

REACTIONS (9)
  - Diarrhoea [None]
  - Hypocalcaemia [None]
  - Hypomagnesaemia [None]
  - Electrocardiogram change [None]
  - Latent tetany [None]
  - Asthenia [None]
  - Fatigue [None]
  - Muscular weakness [None]
  - Blood parathyroid hormone abnormal [None]
